FAERS Safety Report 7976772-6 (Version None)
Quarter: 2011Q4

REPORT INFORMATION
  Report Type: 
  Country: None (occurrence: None)
  Receive Date: 20111213
  Receipt Date: 20111108
  Transmission Date: 20120403
  Serious: No
  Sender: FDA-Public Use
  Company Number: US-AMGEN-USASP2011056395

PATIENT
  Sex: Male

DRUGS (2)
  1. TREXALL [Concomitant]
     Dosage: 8 MG, UNK
     Dates: start: 20100401
  2. ENBREL [Suspect]
     Indication: RHEUMATOID ARTHRITIS
     Dosage: 50 MG, QWK
     Dates: start: 20100506

REACTIONS (4)
  - MUSCULOSKELETAL PAIN [None]
  - BACK PAIN [None]
  - FATIGUE [None]
  - NECK PAIN [None]
